FAERS Safety Report 9843169 (Version 2)
Quarter: 2014Q1

REPORT INFORMATION
  Report Type: Spontaneous
  Country: JP (occurrence: JP)
  Receive Date: 20140124
  Receipt Date: 20140130
  Transmission Date: 20141002
  Serious: Yes (Other)
  Sender: FDA-Public Use
  Company Number: JP-ABBVIE-14P-087-1191978-00

PATIENT
  Age: 2 Year
  Sex: Female

DRUGS (6)
  1. SODIUM VALPROATE [Suspect]
     Indication: CONVULSION
     Route: 065
  2. CLOBAZAM [Suspect]
     Indication: PRODUCT USED FOR UNKNOWN INDICATION
  3. TOPIRAMATE [Suspect]
     Indication: PRODUCT USED FOR UNKNOWN INDICATION
  4. DANTROLENE [Suspect]
     Indication: PRODUCT USED FOR UNKNOWN INDICATION
  5. TIZANIDINE HYDROCHLORIDE [Suspect]
     Indication: PRODUCT USED FOR UNKNOWN INDICATION
  6. ENZYME REPLACEMENT THERAPY [Concomitant]
     Indication: GAUCHER^S DISEASE

REACTIONS (18)
  - Osteomyelitis [Unknown]
  - Fanconi syndrome acquired [Recovering/Resolving]
  - Pathological fracture [Unknown]
  - Myoclonic epilepsy [Unknown]
  - Anaemia [Unknown]
  - Thrombocytopenia [Unknown]
  - Blood calcium decreased [Unknown]
  - Blood phosphorus decreased [Unknown]
  - Blood uric acid decreased [Unknown]
  - Carnitine decreased [Unknown]
  - Beta 2 microglobulin urine increased [Unknown]
  - Acquired aminoaciduria [Unknown]
  - Femur fracture [Unknown]
  - Local swelling [Unknown]
  - Erythema [Unknown]
  - Feeling hot [Unknown]
  - Body temperature increased [Unknown]
  - Heart rate increased [Unknown]
